FAERS Safety Report 6709759-1 (Version None)
Quarter: 2010Q2

REPORT INFORMATION
  Report Type: 
  Country: None (occurrence: None)
  Receive Date: 20100504
  Receipt Date: 20100423
  Transmission Date: 20101027
  Serious: Yes (Other)
  Sender: FDA-Public Use
  Company Number: MX-ROCHE-700609

PATIENT
  Sex: Male

DRUGS (3)
  1. RIVOTRIL [Suspect]
     Route: 048
  2. TENORMIN [Concomitant]
     Route: 048
  3. PAXIL [Concomitant]
     Route: 048

REACTIONS (1)
  - ERECTILE DYSFUNCTION [None]
